FAERS Safety Report 21119175 (Version 1)
Quarter: 2022Q3

REPORT INFORMATION
  Report Type: Spontaneous
  Country: US (occurrence: None)
  Receive Date: 20220721
  Receipt Date: 20220721
  Transmission Date: 20221026
  Serious: No
  Sender: FDA-Public Use
  Company Number: None

PATIENT
  Age: 35 Year
  Sex: Female
  Weight: 72 kg

DRUGS (1)
  1. HAND SANITIZER FREE AND CLEAR [Suspect]
     Active Substance: ALCOHOL
     Indication: Antibiotic prophylaxis
     Route: 061
     Dates: start: 20220710, end: 20220721

REACTIONS (1)
  - Rash pruritic [None]

NARRATIVE: CASE EVENT DATE: 20220721
